FAERS Safety Report 10435277 (Version 1)
Quarter: 2014Q3

REPORT INFORMATION
  Report Type: Spontaneous
  Country: NL (occurrence: NL)
  Receive Date: 20140908
  Receipt Date: 20140908
  Transmission Date: 20150326
  Serious: Yes (Death)
  Sender: FDA-Public Use
  Company Number: NL-AMGEN-NLDSP2014067577

PATIENT
  Age: 67 Year

DRUGS (1)
  1. ARANESP [Suspect]
     Active Substance: DARBEPOETIN ALFA
     Indication: ANAEMIA OF MALIGNANT DISEASE
     Dosage: 1.0 ML, Q3WK, 500MCG/ML
     Route: 058
     Dates: start: 20140808, end: 20140902

REACTIONS (1)
  - Death [Fatal]
